FAERS Safety Report 8150753-4 (Version None)
Quarter: 2012Q1

REPORT INFORMATION
  Report Type: 
  Country: None (occurrence: None)
  Receive Date: 20120220
  Receipt Date: 20120206
  Transmission Date: 20120608
  Serious: Yes (Other)
  Sender: FDA-Public Use
  Company Number: PL-AMGEN-POLSP2012009027

PATIENT
  Age: 46 Year
  Sex: Female

DRUGS (5)
  1. METYPRED                           /00049601/ [Concomitant]
     Dosage: UNK
     Route: 048
     Dates: start: 20040101
  2. METHOTREXATE [Concomitant]
     Dosage: UNK
     Route: 058
     Dates: start: 20100101
  3. CITAL                              /00582602/ [Concomitant]
     Dosage: UNK
     Route: 048
     Dates: start: 20100101
  4. DICLAC                             /00372302/ [Concomitant]
     Dosage: UNK
     Route: 048
     Dates: start: 20070101
  5. ENBREL [Suspect]
     Indication: RHEUMATOID ARTHRITIS
     Dosage: 50 MG, WEEKLY
     Route: 058
     Dates: start: 20110427

REACTIONS (2)
  - MYALGIA [None]
  - BORRELIA INFECTION [None]
